FAERS Safety Report 15178861 (Version 5)
Quarter: 2020Q1

REPORT INFORMATION
  Report Type: Spontaneous
  Country: DE (occurrence: DE)
  Receive Date: 20180722
  Receipt Date: 20200222
  Transmission Date: 20200409
  Serious: Yes (Death, Life-Threatening, Hospitalization)
  Sender: FDA-Public Use
  Company Number: PHHY2016DE187072

PATIENT
  Age: 50 Year
  Sex: Female
  Weight: 66 kg

DRUGS (12)
  1. TRASTUZUMAB. [Suspect]
     Active Substance: TRASTUZUMAB
     Indication: HER-2 POSITIVE BREAST CANCER
     Dosage: 6 MG/KG (MOST RECENT DOSE ON 05 JUL 2017)
     Route: 042
     Dates: start: 20140108
  2. KEPPRA [Concomitant]
     Active Substance: LEVETIRACETAM
     Indication: EPILEPSY
     Dosage: 1500 MG, QD (LAST DOSE ON 06 JAN 2017, 1 PRO TAG / PER DAY.)
     Route: 048
     Dates: start: 20060630
  3. ASPIRIN. [Concomitant]
     Active Substance: ASPIRIN
     Indication: CEREBROVASCULAR ACCIDENT
     Dosage: 100 MG (LAST DOSE ON 06/JAN/2017)
     Route: 065
  4. PERTUZUMAB. [Suspect]
     Active Substance: PERTUZUMAB
     Indication: HER-2 POSITIVE BREAST CANCER
     Dosage: 420 MG, (EVERY 21 DAYS, MOST RECENT DOSE ON 05 JUL 2017)
     Route: 042
     Dates: start: 20161108
  5. CLOPIDOGREL [Concomitant]
     Active Substance: CLOPIDOGREL BISULFATE
     Indication: PRODUCT USED FOR UNKNOWN INDICATION
     Dosage: UNK
     Route: 065
     Dates: start: 20170621
  6. TRASTUZUMAB. [Suspect]
     Active Substance: TRASTUZUMAB
     Dosage: 6 MG/KG (MOST RECENT DOSE ON 05 JUL 2017)
     Route: 042
     Dates: start: 20161108
  7. DOCETAXEL. [Suspect]
     Active Substance: DOCETAXEL
     Indication: HER-2 POSITIVE BREAST CANCER
     Dosage: 1 OT (60-75 MG/M2), EVERY 21 DAYS
     Route: 042
     Dates: start: 20161108
  8. TRASTUZUMAB. [Suspect]
     Active Substance: TRASTUZUMAB
     Dosage: 6 MG/KG (6 MG/KG, UNK (EVERY 21 DAYS)(MOST RECENT DOSE ON 05 JUL 2017))
     Route: 042
     Dates: start: 20160108
  9. ZOMETA [Suspect]
     Active Substance: ZOLEDRONIC ACID
     Indication: PRODUCT USED FOR UNKNOWN INDICATION
     Dosage: 4 MG, 28D (MOST RECENT DOSE ON 19 JUL 2017)
     Route: 065
     Dates: start: 20170302
  10. PANTOPRAZOL [Concomitant]
     Active Substance: PANTOPRAZOLE SODIUM
     Indication: PRODUCT USED FOR UNKNOWN INDICATION
     Dosage: UNK (LAST DOSE ON 06 JAN 2017)
     Route: 065
     Dates: start: 20170621
  11. LETROZOLE. [Suspect]
     Active Substance: LETROZOLE
     Indication: HER-2 POSITIVE BREAST CANCER
     Dosage: 2.5 MG, UNK (2.5 MG, (LAST DOSE PRIOR TO SAE WAS ON 18 AUG 2017))
     Route: 065
     Dates: start: 201405
  12. ATORVASTATIN [Concomitant]
     Active Substance: ATORVASTATIN
     Indication: HYPERCHOLESTEROLAEMIA
     Dosage: 20 MG, QD (1 PRO TAG / PER DAY)
     Route: 048

REACTIONS (11)
  - Diarrhoea [Recovered/Resolved]
  - Neutropenia [Recovered/Resolved]
  - Death [Fatal]
  - Epistaxis [Recovered/Resolved]
  - Mucosal inflammation [Recovered/Resolved]
  - Vertigo [Recovered/Resolved]
  - Dysgeusia [Recovered/Resolved]
  - Febrile neutropenia [Not Recovered/Not Resolved]
  - Cough [Not Recovered/Not Resolved]
  - Disease progression [Fatal]
  - Dysuria [Not Recovered/Not Resolved]

NARRATIVE: CASE EVENT DATE: 20161115
